FAERS Safety Report 16764592 (Version 1)
Quarter: 2019Q3

REPORT INFORMATION
  Report Type: Spontaneous
  Country: US (occurrence: US)
  Receive Date: 20190712
  Receipt Date: 20190712
  Transmission Date: 20191005
  Serious: Yes (Hospitalization)
  Sender: FDA-Public Use
  Company Number: None

PATIENT
  Age: 64 Year
  Sex: Male
  Weight: 92.1 kg

DRUGS (9)
  1. APIXABAN (DOSE DOUBLEWBLINDED) [Suspect]
     Active Substance: APIXABAN
     Indication: THROMBOSIS PROPHYLAXIS
     Dosage: ?          OTHER DOSE:DOUBLE-BLINDED;?
     Route: 048
     Dates: start: 20190522
  2. CREON [Concomitant]
     Active Substance: PANCRELIPASE AMYLASE\PANCRELIPASE LIPASE\PANCRELIPASE PROTEASE
  3. MAGNESIUM OXIDE. [Concomitant]
     Active Substance: MAGNESIUM OXIDE
  4. URSODIOL. [Suspect]
     Active Substance: URSODIOL
  5. FOLFIRINOX [Concomitant]
     Active Substance: FLUOROURACIL\IRINOTECAN\LEUCOVORIN\OXALIPLATIN
  6. EMLA [Concomitant]
     Active Substance: LIDOCAINE\PRILOCAINE
  7. VITAMIN D3 [Concomitant]
     Active Substance: CHOLECALCIFEROL
  8. PRILOSEC [Concomitant]
     Active Substance: OMEPRAZOLE MAGNESIUM
  9. GAS-X [Concomitant]
     Active Substance: DIMETHICONE

REACTIONS (5)
  - Blood culture positive [None]
  - Cholangitis [None]
  - Pancytopenia [None]
  - Escherichia infection [None]
  - Device dislocation [None]

NARRATIVE: CASE EVENT DATE: 20190710
